FAERS Safety Report 17995195 (Version 2)
Quarter: 2020Q3

REPORT INFORMATION
  Report Type: Spontaneous
  Country: US (occurrence: US)
  Receive Date: 20200708
  Receipt Date: 20200829
  Transmission Date: 20201103
  Serious: Yes (Other)
  Sender: FDA-Public Use
  Company Number: US-GILEAD-2020-0479629

PATIENT
  Sex: Male

DRUGS (1)
  1. TRUVADA [Suspect]
     Active Substance: EMTRICITABINE\TENOFOVIR DISOPROXIL FUMARATE
     Indication: HIV INFECTION
     Dosage: UNK
     Route: 048
     Dates: start: 20140321, end: 20191203

REACTIONS (9)
  - Pain [Unknown]
  - Bone density decreased [Unknown]
  - Osteopenia [Unknown]
  - Anxiety [Unknown]
  - Anhedonia [Unknown]
  - Renal failure [Unknown]
  - Osteoporosis [Unknown]
  - Fracture [Unknown]
  - Emotional distress [Unknown]
